FAERS Safety Report 8402447-5 (Version None)
Quarter: 2012Q1

REPORT INFORMATION
  Report Type: 
  Country: None (occurrence: None)
  Receive Date: 20120323
  Receipt Date: 20110208
  Transmission Date: 20120608
  Serious: Yes (Other)
  Sender: FDA-Public Use
  Company Number: 163-21880-11011330

PATIENT
  Age: 87 Year
  Sex: Male
  Weight: 70.3 kg

DRUGS (11)
  1. REVLIMID [Suspect]
     Indication: MULTIPLE MYELOMA
     Dosage: 15 MG, 1 IN 1 D, PO 15 MG, 1 IN 1 D, PO 10 MG, DAILY ON DAYS 1-21, PO
     Route: 048
     Dates: start: 20080130
  2. REVLIMID [Suspect]
     Indication: MULTIPLE MYELOMA
     Dosage: 15 MG, 1 IN 1 D, PO 15 MG, 1 IN 1 D, PO 10 MG, DAILY ON DAYS 1-21, PO
     Route: 048
     Dates: start: 20100101
  3. REVLIMID [Suspect]
     Indication: MULTIPLE MYELOMA
     Dosage: 15 MG, 1 IN 1 D, PO 15 MG, 1 IN 1 D, PO 10 MG, DAILY ON DAYS 1-21, PO
     Route: 048
     Dates: start: 20101101, end: 20110126
  4. PRESERVISION LUTEIN (XANTOFYL) (CAPSULES) [Concomitant]
  5. DIOVAN [Concomitant]
  6. MULTIVITAMIN (MULTIVITAMINS) (TABLETS) [Concomitant]
  7. ASPIRIN [Concomitant]
  8. DEXAMETHASONE [Concomitant]
  9. ASPIRIN BUFFERIN (ACETYLSALICYLIC ACID) (TABLETS) [Concomitant]
  10. DECADRON [Concomitant]
  11. FOSAMAX (ALENDRONATE SODIUM) (UNKNOWN) [Concomitant]

REACTIONS (9)
  - CHILLS [None]
  - RHINORRHOEA [None]
  - SWOLLEN TONGUE [None]
  - JOINT LOCK [None]
  - RESPIRATORY TRACT CONGESTION [None]
  - HYPERHIDROSIS [None]
  - DYSARTHRIA [None]
  - PRODUCTIVE COUGH [None]
  - GINGIVAL PAIN [None]
